FAERS Safety Report 5809089-6 (Version None)
Quarter: 2008Q3

REPORT INFORMATION
  Report Type: 
  Country: None (occurrence: None)
  Receive Date: 20080714
  Receipt Date: 20080630
  Transmission Date: 20090109
  Serious: Yes (Hospitalization)
  Sender: FDA-Public Use
  Company Number: FR-AVENTIS-200812492FR

PATIENT
  Age: 85 Year
  Sex: Female

DRUGS (14)
  1. CORTANCYL [Suspect]
     Route: 048
     Dates: start: 20070601, end: 20080601
  2. CLAFORAN [Suspect]
     Indication: INFECTION
     Route: 042
     Dates: start: 20080425, end: 20080502
  3. OFLOCET                            /00731801/ [Suspect]
     Indication: INFECTION
     Route: 042
     Dates: start: 20080425, end: 20080502
  4. FLAGYL [Suspect]
     Indication: INFECTION
     Route: 048
     Dates: start: 20080426, end: 20080502
  5. RULID [Suspect]
     Indication: INFECTION
     Route: 048
     Dates: start: 20080502, end: 20080506
  6. ENDOXAN [Suspect]
     Route: 042
     Dates: start: 20080410
  7. UROMITEXAN [Suspect]
     Route: 042
     Dates: start: 20080410, end: 20080609
  8. BACTRIM [Suspect]
     Indication: INFECTION
     Route: 048
     Dates: start: 20080426, end: 20080505
  9. AUGMENTIN '125' [Suspect]
     Indication: INFECTION
     Route: 048
     Dates: start: 20080502, end: 20080508
  10. LEVOTHYROX [Concomitant]
     Indication: DRUG USE FOR UNKNOWN INDICATION
     Route: 048
  11. CACIT D3 [Concomitant]
     Indication: DRUG USE FOR UNKNOWN INDICATION
     Route: 048
  12. ACTONEL [Concomitant]
     Indication: DRUG USE FOR UNKNOWN INDICATION
     Route: 048
  13. KARDEGIC                           /00002703/ [Concomitant]
     Indication: DRUG USE FOR UNKNOWN INDICATION
     Route: 048
  14. NEXIUM [Concomitant]
     Indication: DRUG USE FOR UNKNOWN INDICATION
     Route: 048

REACTIONS (3)
  - AGRANULOCYTOSIS [None]
  - LEUKOPENIA [None]
  - LYMPHOPENIA [None]
